FAERS Safety Report 12072491 (Version 1)
Quarter: 2016Q1

REPORT INFORMATION
  Report Type: Spontaneous
  Country: US (occurrence: US)
  Receive Date: 20160212
  Receipt Date: 20160212
  Transmission Date: 20160526
  Serious: No
  Sender: FDA-Public Use
  Company Number: US-009507513-1602USA004510

PATIENT
  Age: 22 Year
  Sex: Female

DRUGS (1)
  1. DULERA [Suspect]
     Active Substance: FORMOTEROL FUMARATE DIHYDRATE\MOMETASONE FUROATE
     Dosage: 2 PUFF TWICE A DAY

REACTIONS (5)
  - Heart rate irregular [Unknown]
  - Breast enlargement [Unknown]
  - Headache [Unknown]
  - Dizziness [Unknown]
  - Chest pain [Unknown]
